FAERS Safety Report 14472891 (Version 3)
Quarter: 2018Q1

REPORT INFORMATION
  Report Type: Report from Study
  Country: US (occurrence: US)
  Receive Date: 20180201
  Receipt Date: 20180225
  Transmission Date: 20180509
  Serious: Yes (Hospitalization, Other)
  Sender: FDA-Public Use
  Company Number: US-ALEXION PHARMACEUTICALS INC.-A201800537

PATIENT
  Age: 30 Year
  Sex: Female

DRUGS (4)
  1. SOLIRIS [Suspect]
     Active Substance: ECULIZUMAB
     Dosage: 1200 MG, Q2W
     Route: 042
     Dates: start: 20160813, end: 20171017
  2. SOLIRIS [Suspect]
     Active Substance: ECULIZUMAB
     Dosage: 1200 MG, UNK
     Route: 042
     Dates: start: 20170831, end: 20171017
  3. SOLIRIS [Suspect]
     Active Substance: ECULIZUMAB
     Indication: ATYPICAL HAEMOLYTIC URAEMIC SYNDROME
     Dosage: UNK
     Route: 065
  4. KEPPRA [Concomitant]
     Active Substance: LEVETIRACETAM
     Indication: SEIZURE
     Dosage: UNK
     Route: 065

REACTIONS (17)
  - Pseudomonas infection [Not Recovered/Not Resolved]
  - Escherichia infection [Not Recovered/Not Resolved]
  - Fatigue [Not Recovered/Not Resolved]
  - Candida infection [Unknown]
  - Microangiopathic haemolytic anaemia [Not Recovered/Not Resolved]
  - End stage renal disease [Not Recovered/Not Resolved]
  - Anaemia of chronic disease [Unknown]
  - Asthenia [Not Recovered/Not Resolved]
  - Eczema [Unknown]
  - Clostridium difficile infection [Recovering/Resolving]
  - Staphylococcal infection [Unknown]
  - Systemic lupus erythematosus [Unknown]
  - Hypertensive emergency [Not Recovered/Not Resolved]
  - Lupus nephritis [Not Recovered/Not Resolved]
  - Gastritis [Unknown]
  - Respiratory failure [Not Recovered/Not Resolved]
  - Acute kidney injury [Not Recovered/Not Resolved]

NARRATIVE: CASE EVENT DATE: 20180105
